FAERS Safety Report 24786598 (Version 1)
Quarter: 2024Q4

REPORT INFORMATION
  Report Type: Spontaneous
  Country: FR (occurrence: FR)
  Receive Date: 20241230
  Receipt Date: 20241230
  Transmission Date: 20250115
  Serious: Yes (Other)
  Sender: ROCHE
  Company Number: None

PATIENT
  Age: 59 Year
  Sex: Female
  Weight: 80 kg

DRUGS (9)
  1. BEVACIZUMAB [Suspect]
     Active Substance: BEVACIZUMAB
     Indication: Glioblastoma
     Dosage: C1J1 LE 28/09/2024
     Route: 042
     Dates: start: 20240928, end: 20241026
  2. LOMUSTINE [Concomitant]
     Active Substance: LOMUSTINE
     Indication: Glioblastoma
     Dosage: J1 DES CYCLES
     Route: 048
     Dates: start: 20240928, end: 20240928
  3. LOMUSTINE [Concomitant]
     Active Substance: LOMUSTINE
     Dosage: J1 DES CYCLES
     Route: 048
     Dates: start: 20241108, end: 20241108
  4. INNOHEP 14 000 U.I. anti-Xa/0,7 ml, solution injectable (S.C.) en seri [Concomitant]
     Indication: Embolism
     Dosage: 1-0-0
     Route: 058
     Dates: start: 202409
  5. PREDNISOLONE SODIUM METAZOATE [Concomitant]
     Active Substance: PREDNISOLONE SODIUM METAZOATE
     Indication: Product used for unknown indication
     Dosage: 20MG 2-1-0
     Route: 048
  6. LANSOPRAZOLE [Concomitant]
     Active Substance: LANSOPRAZOLE
     Indication: Prophylaxis against gastrointestinal ulcer
     Dosage: 1-0-0
     Route: 048
  7. ALPRAZOLAM [Concomitant]
     Active Substance: ALPRAZOLAM
     Indication: Product used for unknown indication
     Dosage: MAX 4 CPR / JOUR
     Route: 048
  8. POLYETHYLENE GLYCOL 3350 [Concomitant]
     Active Substance: POLYETHYLENE GLYCOL 3350
     Indication: Constipation
     Dosage: 1-0-0
     Route: 048
  9. ACETAMINOPHEN [Concomitant]
     Active Substance: ACETAMINOPHEN
     Indication: Pain management
     Dosage: MAX 4G/JOUR
     Route: 048

REACTIONS (1)
  - Retinal vein occlusion [Recovering/Resolving]

NARRATIVE: CASE EVENT DATE: 20241001
